FAERS Safety Report 4786147-9 (Version None)
Quarter: 2005Q3

REPORT INFORMATION
  Report Type: 
  Country: None (occurrence: None)
  Receive Date: 20050930
  Receipt Date: 20050930
  Transmission Date: 20060218
  Serious: Yes (Hospitalization)
  Sender: FDA-Public Use
  Company Number: None

PATIENT

DRUGS (8)
  1. SIMVASTATIN [Suspect]
     Indication: DYSLIPIDAEMIA
     Dosage: 80 MG DAILY PO
     Route: 048
  2. GEMFIBROZIL [Suspect]
     Indication: DYSLIPIDAEMIA
     Dosage: 600 MG BID PO
     Route: 048
  3. ATENOLOL [Concomitant]
  4. FELODIPINE [Concomitant]
  5. FERROUS SULFATE [Concomitant]
  6. MINOXIDIL [Concomitant]
  7. NEPHRO-VITE [Concomitant]
  8. OMEPRAZOLE [Concomitant]

REACTIONS (1)
  - RHABDOMYOLYSIS [None]
